FAERS Safety Report 16840559 (Version 1)
Quarter: 2019Q3

REPORT INFORMATION
  Report Type: Spontaneous
  Country: US (occurrence: US)
  Receive Date: 20190923
  Receipt Date: 20190923
  Transmission Date: 20191005
  Serious: Yes (Death)
  Sender: FDA-Public Use
  Company Number: US-AMNEAL PHARMACEUTICALS-2019-AMRX-01913

PATIENT
  Age: 81 Year
  Sex: Male

DRUGS (1)
  1. RYTARY [Suspect]
     Active Substance: CARBIDOPA\LEVODOPA
     Indication: PARKINSON^S DISEASE
     Dosage: 3 CAPSULES, QID
     Route: 048
     Dates: start: 201705, end: 20190905

REACTIONS (4)
  - Gait disturbance [Unknown]
  - Parkinson^s disease [Fatal]
  - Aphasia [Unknown]
  - Dysphagia [Unknown]

NARRATIVE: CASE EVENT DATE: 2019
